FAERS Safety Report 6411926-1 (Version None)
Quarter: 2009Q4

REPORT INFORMATION
  Report Type: 
  Country: None (occurrence: None)
  Receive Date: 20091021
  Receipt Date: 20090928
  Transmission Date: 20100525
  Serious: Yes (Hospitalization)
  Sender: FDA-Public Use
  Company Number: US-2009-00246

PATIENT
  Age: 71 Year
  Sex: Female

DRUGS (9)
  1. SERTRALINE HYDROCHLORIDE [Suspect]
     Dosage: 50 MG ONCE DAILY, ORAL
     Route: 048
     Dates: start: 20070901, end: 20071201
  2. SERTRALINE HYDROCHLORIDE [Suspect]
     Dosage: 50 MG ONCE DAILY, ORAL
     Route: 048
     Dates: start: 20080101, end: 20080201
  3. AMISULPRIDE [Concomitant]
  4. DIAZEPAM [Concomitant]
  5. NICERGOLINE [Concomitant]
  6. AMLODIPINE [Concomitant]
  7. ASPIRIN [Concomitant]
  8. CANDESARTAN CILEXETIL [Concomitant]
  9. ATENOLOL [Concomitant]

REACTIONS (6)
  - BLOOD UREA INCREASED [None]
  - CARDIAC MURMUR [None]
  - CARDIAC PACEMAKER REPLACEMENT [None]
  - DEPRESSION [None]
  - PULSE ABNORMAL [None]
  - RHABDOMYOLYSIS [None]
